FAERS Safety Report 23906198 (Version 1)
Quarter: 2024Q2

REPORT INFORMATION
  Report Type: Spontaneous
  Country: JP (occurrence: JP)
  Receive Date: 20240528
  Receipt Date: 20240528
  Transmission Date: 20240715
  Serious: Yes (Other)
  Sender: FDA-Public Use
  Company Number: JP-GENMAB-2024-01755

PATIENT
  Age: 8 Decade
  Sex: Male

DRUGS (1)
  1. EPKINLY [Suspect]
     Active Substance: EPCORITAMAB-BYSP
     Indication: Diffuse large B-cell lymphoma refractory
     Dosage: 48 MILLIGRAM
     Route: 058
     Dates: start: 20240325, end: 20240506

REACTIONS (1)
  - Diffuse large B-cell lymphoma refractory [Not Recovered/Not Resolved]

NARRATIVE: CASE EVENT DATE: 20240506
